FAERS Safety Report 10621214 (Version 2)
Quarter: 2014Q4

REPORT INFORMATION
  Report Type: Spontaneous
  Country: DE (occurrence: DE)
  Receive Date: 20141203
  Receipt Date: 20141203
  Transmission Date: 20150529
  Serious: Yes (Life-Threatening)
  Sender: FDA-Public Use
  Company Number: DE-ROCHE-1468536

PATIENT
  Age: 77 Year
  Sex: Female
  Weight: 90 kg

DRUGS (4)
  1. NORTRILEN [Concomitant]
     Active Substance: NORTRIPTYLINE
     Indication: DEPRESSION
     Route: 048
  2. ACTILYSE [Suspect]
     Active Substance: ALTEPLASE
     Indication: CEREBROVASCULAR ACCIDENT
     Dosage: 78MG TOTALLY PLANNED (8MG BOLUS, 60MG/50 MINUTES)
     Route: 042
     Dates: start: 20140820, end: 20140820
  3. THYRONAJOD [Concomitant]
     Active Substance: LEVOTHYROXINE SODIUM\POTASSIUM IODIDE
     Indication: HYPOTHYROIDISM
     Route: 048
  4. RAMIPRIL. [Concomitant]
     Active Substance: RAMIPRIL
     Indication: HYPERTENSION
     Route: 048

REACTIONS (11)
  - Blister [Unknown]
  - Angioedema [Recovered/Resolved]
  - Erythema [Unknown]
  - Swelling face [Recovered/Resolved]
  - Hypersensitivity [Unknown]
  - Swollen tongue [Recovered/Resolved]
  - Dyspnoea [Unknown]
  - Swollen tongue [Unknown]
  - Angioedema [Unknown]
  - Panic attack [Recovered/Resolved]
  - Product quality issue [Unknown]

NARRATIVE: CASE EVENT DATE: 20140820
